FAERS Safety Report 19373139 (Version 1)
Quarter: 2021Q2

REPORT INFORMATION
  Report Type: Spontaneous
  Country: JP (occurrence: JP)
  Receive Date: 20210604
  Receipt Date: 20210604
  Transmission Date: 20210717
  Serious: Yes (Hospitalization)
  Sender: FDA-Public Use
  Company Number: JP-AMERICAN REGENT INC-2021001451

PATIENT
  Sex: Female

DRUGS (7)
  1. TRANSAMIN [Suspect]
     Active Substance: TRANEXAMIC ACID
     Indication: OROPHARYNGEAL PAIN
     Dosage: UNK
     Route: 065
  2. SINGULAIR [Concomitant]
     Active Substance: MONTELUKAST SODIUM
     Indication: PRODUCT USED FOR UNKNOWN INDICATION
     Dosage: UNK
     Route: 065
  3. MUCODYNE [Concomitant]
     Active Substance: CARBOCYSTEINE
     Indication: LARYNGEAL PAIN
     Dosage: UNK
     Route: 065
  4. CLARITH [Concomitant]
     Active Substance: CLARITHROMYCIN
     Indication: PRODUCT USED FOR UNKNOWN INDICATION
     Dosage: UNK
     Route: 065
  5. LOXONIN [Suspect]
     Active Substance: LOXOPROFEN SODIUM
     Indication: LARYNGEAL PAIN
     Dosage: UNK
     Route: 048
  6. MAOBUSHISAISHINTO [Concomitant]
     Active Substance: HERBALS
     Indication: PRODUCT USED FOR UNKNOWN INDICATION
     Dosage: UNK
     Route: 065
  7. CRAVIT [Suspect]
     Active Substance: LEVOFLOXACIN
     Indication: LARYNGEAL PAIN
     Dosage: UNK
     Route: 048

REACTIONS (3)
  - Oropharyngeal pain [Unknown]
  - Cataract [Unknown]
  - Aspirin-exacerbated respiratory disease [Recovered/Resolved]
